FAERS Safety Report 24167873 (Version 2)
Quarter: 2024Q3

REPORT INFORMATION
  Report Type: Report from Study
  Country: JP (occurrence: JP)
  Receive Date: 20240802
  Receipt Date: 20240823
  Transmission Date: 20241017
  Serious: Yes (Life-Threatening, Hospitalization, Disabling, Other)
  Sender: GENMAB
  Company Number: JP-GENMAB-2024-02766

PATIENT
  Age: 59 Year
  Sex: Male
  Weight: 78 kg

DRUGS (9)
  1. EPKINLY [Suspect]
     Active Substance: EPCORITAMAB-BYSP
     Indication: Diffuse large B-cell lymphoma refractory
     Dosage: 0.16 MILLIGRAM, SINGLE
     Route: 058
     Dates: start: 20231220, end: 20231220
  2. EPKINLY [Suspect]
     Active Substance: EPCORITAMAB-BYSP
     Dosage: 0.16 MILLIGRAM, SINGLE
     Route: 058
     Dates: start: 20240105, end: 20240105
  3. EPKINLY [Suspect]
     Active Substance: EPCORITAMAB-BYSP
     Dosage: 0.8 MILLIGRAM, SINGLE
     Route: 058
     Dates: start: 20240112, end: 20240112
  4. EPKINLY [Suspect]
     Active Substance: EPCORITAMAB-BYSP
     Dosage: 48 MILLIGRAM
     Route: 058
     Dates: start: 20240123, end: 20240520
  5. PREDNISOLONE [Suspect]
     Active Substance: PREDNISOLONE
     Indication: Diarrhoea
     Dosage: 0.5 MILLIGRAM/KILOGRAM, STEROID PULSE THERAPY, ADMINISTERED FOR DIARRHOEA (CYCLE2 DAY 24)
     Dates: start: 2024, end: 2024
  6. PREDNISOLONE [Suspect]
     Active Substance: PREDNISOLONE
     Dosage: 1 MILLIGRAM/KILOGRAM, STEROID PULSE THERAPY, ADMINISTERED FOR DIARRHOEA
     Dates: start: 2024, end: 2024
  7. CORTICOTROPIN [Concomitant]
     Active Substance: CORTICOTROPIN
     Indication: Prophylaxis
     Dosage: UNK, AT ADMINISTRATION OF EPKINLY
     Dates: start: 20231220, end: 20240130
  8. ANTIHISTAMINES NOS [Concomitant]
     Active Substance: ANTIHISTAMINES NOS
     Indication: Prophylaxis
     Dosage: UNK, AT ADMINISTRATION OF EPKINLY
     Dates: start: 20231220, end: 20240130
  9. UNSPECIFIED INGREDIENT [Concomitant]
     Active Substance: UNSPECIFIED INGREDIENT
     Indication: Prophylaxis
     Dosage: UNK, AT ADMINISTRATION OF EPKINLY
     Dates: start: 20231220, end: 20240130

REACTIONS (11)
  - Haemorrhagic gastroenteritis [Recovered/Resolved with Sequelae]
  - Cytomegalovirus enterocolitis [Recovered/Resolved with Sequelae]
  - Cytokine release syndrome [Recovered/Resolved]
  - Diarrhoea [Not Recovered/Not Resolved]
  - Intervertebral discitis [Recovering/Resolving]
  - Psoas abscess [Recovering/Resolving]
  - Gastrointestinal oedema [Unknown]
  - Large intestine erosion [Unknown]
  - Gastrointestinal oedema [Unknown]
  - Large intestinal ulcer [Unknown]
  - Diarrhoea [Unknown]

NARRATIVE: CASE EVENT DATE: 20240101
